FAERS Safety Report 8505726-6 (Version None)
Quarter: 2012Q3

REPORT INFORMATION
  Report Type: 
  Country: None (occurrence: None)
  Receive Date: 20120712
  Receipt Date: 20120703
  Transmission Date: 20120928
  Serious: Yes (Hospitalization, Disabling, Other)
  Sender: FDA-Public Use
  Company Number: US-MSD-1202USA03517

PATIENT

DRUGS (4)
  1. FOSAMAX [Suspect]
     Indication: OSTEOPOROSIS
     Dosage: 70 MG, UNK
     Route: 048
     Dates: start: 19980101, end: 20100601
  2. BONIVA [Suspect]
     Indication: OSTEOPOROSIS
     Dates: start: 20000101, end: 20100601
  3. BONIVA [Suspect]
     Indication: OSTEOPENIA
  4. FOSAMAX [Suspect]
     Indication: OSTEOPENIA

REACTIONS (28)
  - GASTROOESOPHAGEAL REFLUX DISEASE [None]
  - TOOTH DISORDER [None]
  - ARTHRALGIA [None]
  - METATARSALGIA [None]
  - HIATUS HERNIA [None]
  - FEMUR FRACTURE [None]
  - SKIN TIGHTNESS [None]
  - ALOPECIA [None]
  - FOOT FRACTURE [None]
  - LOW TURNOVER OSTEOPATHY [None]
  - SPINAL OSTEOARTHRITIS [None]
  - GLUCOSE TOLERANCE IMPAIRED [None]
  - BURSITIS [None]
  - PAIN IN EXTREMITY [None]
  - FLUID RETENTION [None]
  - INTERVERTEBRAL DISC PROTRUSION [None]
  - VITAMIN D DEFICIENCY [None]
  - OSTEONECROSIS [None]
  - RADICULOPATHY [None]
  - TRIGGER FINGER [None]
  - EYE DISORDER [None]
  - UTERINE DISORDER [None]
  - ADVERSE EVENT [None]
  - OSTEOARTHRITIS [None]
  - MYALGIA [None]
  - ANAEMIA [None]
  - IODINE ALLERGY [None]
  - BACK PAIN [None]
